FAERS Safety Report 17168679 (Version 1)
Quarter: 2019Q4

REPORT INFORMATION
  Report Type: Report from Study
  Country: SA (occurrence: SA)
  Receive Date: 20191218
  Receipt Date: 20191218
  Transmission Date: 20200122
  Serious: Yes (Hospitalization, Other)
  Sender: FDA-Public Use
  Company Number: SA-ACCORD-166476

PATIENT
  Age: 45 Year

DRUGS (4)
  1. CISPLATIN. [Suspect]
     Active Substance: CISPLATIN
     Indication: PRODUCT USED FOR UNKNOWN INDICATION
     Dosage: AT A FLOW RATE OF 1 L OF PERFUSATE PER MINUTE
     Route: 033
  2. DOXORUBICIN [Suspect]
     Active Substance: DOXORUBICIN
     Indication: PRODUCT USED FOR UNKNOWN INDICATION
     Dosage: AT A FLOW RATE OF 1 L OF PERFUSATE PER MINUTE
     Route: 033
  3. MESNA. [Concomitant]
     Active Substance: MESNA
     Indication: PROPHYLAXIS
     Dosage: 100 ML OF 0.9% NACL 15 MIN PRIOR TO THE INITIATION OF IFOSFAMIDE, THEN REPEATED 4 AND 8 H LATER
  4. IFOSFAMIDE. [Suspect]
     Active Substance: IFOSFAMIDE
     Indication: PRODUCT USED FOR UNKNOWN INDICATION
     Dosage: IN 1 L OF 0.9% NACL AND CONTINUED AT A CONSTANT RATE OVER THE NEXT 90 MINUTES
     Route: 042

REACTIONS (2)
  - Acute kidney injury [Recovered/Resolved]
  - Erythropenia [Recovered/Resolved]
